FAERS Safety Report 5119289-9 (Version None)
Quarter: 2006Q4

REPORT INFORMATION
  Report Type: 
  Country: None (occurrence: None)
  Receive Date: 20061003
  Receipt Date: 20060613
  Transmission Date: 20070319
  Serious: Yes (Hospitalization)
  Sender: FDA-Public Use
  Company Number: FR-BAYER-200610558BFR

PATIENT
  Age: 66 Year
  Sex: Female

DRUGS (17)
  1. SORAFENIB [Suspect]
     Indication: RENAL CELL CARCINOMA STAGE UNSPECIFIED
     Dosage: TOTAL DAILY DOSE: 200 MG  UNIT DOSE: 200 MG
     Route: 048
     Dates: start: 20060414, end: 20060531
  2. LEXOMIL [Concomitant]
     Indication: DEPRESSION
     Route: 065
     Dates: start: 20051206
  3. ZOLPIDEM TARTRATE [Concomitant]
     Indication: INSOMNIA
     Route: 065
     Dates: start: 20051206
  4. IXPRIM [Concomitant]
     Indication: BACK PAIN
     Route: 065
     Dates: start: 20050206
  5. DIANTALVIC [Concomitant]
     Indication: BACK PAIN
     Route: 065
     Dates: start: 20050101
  6. TOPALGIC [Concomitant]
     Indication: BACK PAIN
     Route: 065
     Dates: start: 20050101
  7. TOPALGIC [Concomitant]
     Route: 065
     Dates: start: 20050101
  8. SKENAN [Concomitant]
     Indication: BACK PAIN
     Route: 065
     Dates: start: 20051216, end: 20060223
  9. MORPHINE SULFATE [Concomitant]
     Indication: BACK PAIN
     Route: 065
     Dates: start: 20051216
  10. LAMALINE [Concomitant]
     Indication: SCAR PAIN
     Route: 065
     Dates: start: 20060123
  11. OMEPRAZOLE [Concomitant]
     Indication: ABDOMINAL PAIN UPPER
     Route: 065
     Dates: start: 20060209
  12. OXYCONTIN [Concomitant]
     Indication: PAIN
     Route: 065
     Dates: start: 20060223, end: 20060404
  13. OXYCONTIN [Concomitant]
     Route: 065
     Dates: start: 20060404
  14. OXYNORM [Concomitant]
     Indication: PAIN
     Route: 065
     Dates: start: 20060223, end: 20060404
  15. OXYNORM [Concomitant]
     Route: 065
     Dates: start: 20060404
  16. SEROPRAM [Concomitant]
     Indication: ANXIETY
     Route: 065
     Dates: start: 20060404
  17. SOTALOL HCL [Concomitant]
     Indication: TACHYCARDIA
     Route: 065
     Dates: start: 20060410

REACTIONS (7)
  - ABDOMINAL PAIN UPPER [None]
  - ANOREXIA [None]
  - DISEASE PROGRESSION [None]
  - DYSPNOEA [None]
  - GENERAL PHYSICAL HEALTH DETERIORATION [None]
  - MALNUTRITION [None]
  - TACHYCARDIA [None]
